FAERS Safety Report 17850704 (Version 5)
Quarter: 2020Q3

REPORT INFORMATION
  Report Type: Report from Study
  Country: US (occurrence: US)
  Receive Date: 20200602
  Receipt Date: 20200917
  Transmission Date: 20201103
  Serious: No
  Sender: FDA-Public Use
  Company Number: US-BIOVITRUM-2020US2056

PATIENT
  Age: 73 Year
  Sex: Female

DRUGS (1)
  1. KINERET [Suspect]
     Active Substance: ANAKINRA
     Indication: PRODUCT USED FOR UNKNOWN INDICATION
     Route: 058

REACTIONS (12)
  - Arthropod bite [Unknown]
  - Pyrexia [Unknown]
  - Product dose omission issue [Unknown]
  - Blood glucose abnormal [Not Recovered/Not Resolved]
  - Glycosylated haemoglobin abnormal [Not Recovered/Not Resolved]
  - Rash erythematous [Unknown]
  - Hyperhidrosis [Unknown]
  - Bursitis [Unknown]
  - Urinary tract infection [Unknown]
  - Rash [Unknown]
  - Rash [Recovered/Resolved]
  - Pruritus [Unknown]

NARRATIVE: CASE EVENT DATE: 202004
